FAERS Safety Report 10031458 (Version 1)
Quarter: 2014Q1

REPORT INFORMATION
  Report Type: Spontaneous
  Country: GB (occurrence: GB)
  Receive Date: 20140324
  Receipt Date: 20140324
  Transmission Date: 20141002
  Serious: Yes (Hospitalization)
  Sender: FDA-Public Use
  Company Number: GB-MPIJNJ-2014JNJ000942

PATIENT
  Sex: 0

DRUGS (8)
  1. VELCADE [Suspect]
     Indication: PLASMA CELL MYELOMA
     Dosage: 1.3 MG/M2, 1/WEEK
     Route: 058
     Dates: start: 20130925, end: 20140119
  2. CYCLOPHOSPHAMIDE [Suspect]
     Indication: PLASMA CELL MYELOMA
     Dosage: 500 MG, QD
     Route: 048
     Dates: start: 20130925, end: 20140119
  3. DEXAMETHASONE [Suspect]
     Indication: PLASMA CELL MYELOMA
     Dosage: 160 MG, UNK
     Route: 048
     Dates: start: 20130925, end: 20140119
  4. LAMIVUDINE [Concomitant]
     Indication: HEPATITIS B
     Dosage: 400 MG, UNK
     Route: 048
  5. ALLOPURINOL [Concomitant]
     Dosage: 300 MG, UNK
     Route: 048
  6. CIPROFLOXACIN [Concomitant]
     Indication: INFECTION PROPHYLAXIS
     Dosage: 500 MG, UNK
     Route: 048
  7. FLUCONAZOLE [Concomitant]
     Indication: PROPHYLAXIS
     Dosage: 100 MG, UNK
     Route: 048
  8. FUROSEMIDE [Concomitant]

REACTIONS (1)
  - Diabetes mellitus [Recovered/Resolved]
